FAERS Safety Report 9217234 (Version 1)
Quarter: 2013Q2

REPORT INFORMATION
  Report Type: Spontaneous
  Country: US (occurrence: US)
  Receive Date: 20130408
  Receipt Date: 20130408
  Transmission Date: 20140414
  Serious: No
  Sender: FDA-Public Use
  Company Number: US-PFIZER INC-2013107113

PATIENT
  Age: 32 Year
  Sex: Female

DRUGS (6)
  1. VANCOMYCIN HCL [Suspect]
  2. ZOFRAN [Suspect]
  3. PLAQUENIL [Suspect]
  4. TORADOL [Suspect]
  5. PROZAC [Suspect]
  6. BACTRIM [Suspect]

REACTIONS (1)
  - Drug hypersensitivity [Unknown]
